FAERS Safety Report 26074733 (Version 1)
Quarter: 2025Q4

REPORT INFORMATION
  Report Type: Spontaneous
  Country: US (occurrence: US)
  Receive Date: 20251121
  Receipt Date: 20251121
  Transmission Date: 20260117
  Serious: No
  Sender: BAYER HEALTHCARE LLC
  Company Number: US-BAYER-2025A154299

PATIENT
  Age: 57 Year
  Sex: Female

DRUGS (1)
  1. MIRALAX [Suspect]
     Active Substance: POLYETHYLENE GLYCOL 3350
     Indication: Colonoscopy
     Dosage: 1 CAP, 8 OUNCES EVERY 15 MINUTES, CONSUME A TOTAL OF 4 CAPS
     Route: 048

REACTIONS (2)
  - Product prescribing issue [Unknown]
  - Inappropriate schedule of product administration [None]
